FAERS Safety Report 18850242 (Version 11)
Quarter: 2021Q4

REPORT INFORMATION
  Report Type: Spontaneous
  Country: US (occurrence: US)
  Receive Date: 20210205
  Receipt Date: 20211228
  Transmission Date: 20220303
  Serious: Yes (Death, Hospitalization, Other)
  Sender: FDA-Public Use
  Company Number: US-SA-SAC20210203000814

PATIENT
  Age: 65 Year
  Sex: Male

DRUGS (2)
  1. DUPIXENT [Suspect]
     Active Substance: DUPILUMAB
     Indication: Dermatitis atopic
     Dosage: 600 MG, 1X
     Route: 058
     Dates: start: 202008, end: 202008
  2. DUPIXENT [Suspect]
     Active Substance: DUPILUMAB
     Dosage: 300 MG, QOW
     Route: 058
     Dates: start: 2020, end: 202109

REACTIONS (8)
  - Neoplasm malignant [Unknown]
  - Cardiac operation [Unknown]
  - Eczema [Unknown]
  - Scar [Unknown]
  - Rash [Unknown]
  - Abdominal discomfort [Unknown]
  - Gastrointestinal tube insertion [Unknown]
  - Death [Fatal]

NARRATIVE: CASE EVENT DATE: 20210401
